FAERS Safety Report 7217318-X (Version None)
Quarter: 2011Q1

REPORT INFORMATION
  Report Type: 
  Country: None (occurrence: None)
  Receive Date: 20110110
  Receipt Date: 20110105
  Transmission Date: 20110831
  Serious: Yes (Death)
  Sender: FDA-Public Use
  Company Number: US-PFIZER INC-2010181702

PATIENT
  Sex: Female

DRUGS (1)
  1. VFEND [Suspect]
     Dosage: 350 MG, 2X/DAY
     Route: 048

REACTIONS (3)
  - RESPIRATORY FAILURE [None]
  - DISEASE PROGRESSION [None]
  - LUNG TRANSPLANT REJECTION [None]
